FAERS Safety Report 15101029 (Version 1)
Quarter: 2018Q3

REPORT INFORMATION
  Report Type: Spontaneous
  Country: US (occurrence: US)
  Receive Date: 20180703
  Receipt Date: 20180703
  Transmission Date: 20181010
  Serious: No
  Sender: FDA-Public Use
  Company Number: US-PFIZER INC-2018265859

PATIENT
  Age: 17 Year
  Sex: Male

DRUGS (2)
  1. CEFEPIME HCL [Suspect]
     Active Substance: CEFEPIME HYDROCHLORIDE
     Dosage: 2 G, UNK, (EVERY 12 HOURS IS FOR 10 DAYS ONLY)
     Route: 042
     Dates: start: 20160714, end: 20160804
  2. CLINDAMYCIN HCL [Suspect]
     Active Substance: CLINDAMYCIN HYDROCHLORIDE
     Dosage: UNK
     Dates: start: 20160714

REACTIONS (11)
  - Liver disorder [Unknown]
  - White blood cell count decreased [Unknown]
  - Headache [Unknown]
  - Blood bilirubin increased [Unknown]
  - Hepatic enzyme increased [Unknown]
  - Pyrexia [Recovering/Resolving]
  - Erythema [Unknown]
  - Memory impairment [Unknown]
  - Ocular hyperaemia [Unknown]
  - Product use issue [Unknown]
  - Condition aggravated [Unknown]

NARRATIVE: CASE EVENT DATE: 20160802
